FAERS Safety Report 5781798-7 (Version None)
Quarter: 2008Q2

REPORT INFORMATION
  Report Type: 
  Country: None (occurrence: None)
  Receive Date: 20080623
  Receipt Date: 20071114
  Transmission Date: 20081010
  Serious: No
  Sender: FDA-Public Use
  Company Number: US-ASTRAZENECA-2007UW26467

PATIENT
  Age: 17 Year
  Sex: Female
  Weight: 66.7 kg

DRUGS (4)
  1. RHINOCORT [Suspect]
     Indication: HYPERSENSITIVITY
     Dosage: 1 DOSE IN EACH NOSTRIL SO FAR
     Route: 045
     Dates: start: 20071114
  2. RHINOCORT [Suspect]
     Indication: NASAL CONGESTION
     Dosage: 1 DOSE IN EACH NOSTRIL SO FAR
     Route: 045
     Dates: start: 20071114
  3. LORATADINE [Concomitant]
  4. M.V.I. [Concomitant]

REACTIONS (2)
  - DRUG EXPOSURE DURING PREGNANCY [None]
  - SOMNOLENCE [None]
